FAERS Safety Report 16270567 (Version 4)
Quarter: 2021Q1

REPORT INFORMATION
  Report Type: Spontaneous
  Country: DE (occurrence: DE)
  Receive Date: 20190503
  Receipt Date: 20210312
  Transmission Date: 20210419
  Serious: Yes (Hospitalization, Disabling, Other)
  Sender: FDA-Public Use
  Company Number: DE-PFIZER INC-2019182494

PATIENT
  Age: 14 Year
  Sex: Female
  Weight: 53 kg

DRUGS (2)
  1. GARDASIL [Suspect]
     Active Substance: HUMAN PAPILLOMAVIRUS QUADRIVALENT (TYPES 6, 11, 16, AND 18) VACCINE, RECOMBINANT
     Indication: IMMUNISATION
     Dosage: UNK, SINGLE
     Route: 030
     Dates: start: 20140526, end: 20140526
  2. LYRICA [Suspect]
     Active Substance: PREGABALIN
     Dosage: UNK
     Route: 048
     Dates: end: 2018

REACTIONS (35)
  - Clonus [Unknown]
  - Nausea [Unknown]
  - Neurogenic bladder [Unknown]
  - Asthma [Unknown]
  - Arthralgia [Unknown]
  - Acarodermatitis [Recovered/Resolved]
  - Vomiting [Unknown]
  - Headache [Unknown]
  - Pain [Unknown]
  - Gait disturbance [Unknown]
  - Paraplegia [Unknown]
  - Restrictive pulmonary disease [Unknown]
  - Pyrexia [Recovered/Resolved]
  - Dysphagia [Unknown]
  - Paralysis [Unknown]
  - Burning sensation [Unknown]
  - Abdominal pain [Unknown]
  - Back pain [Not Recovered/Not Resolved]
  - Paraesthesia [Unknown]
  - Hypertonic bladder [Unknown]
  - Anorectal disorder [Not Recovered/Not Resolved]
  - Decreased appetite [Unknown]
  - Urinary tract infection [Recovered/Resolved]
  - Guillain-Barre syndrome [Unknown]
  - Cholesterol granuloma [Unknown]
  - Lymphoedema [Unknown]
  - Oedema peripheral [Unknown]
  - Myelitis transverse [Not Recovered/Not Resolved]
  - Postural orthostatic tachycardia syndrome [Not Recovered/Not Resolved]
  - Pain in extremity [Unknown]
  - Neck pain [Unknown]
  - Fatigue [Unknown]
  - Hypoaesthesia [Not Recovered/Not Resolved]
  - Escherichia urinary tract infection [Unknown]
  - Sensation of foreign body [Unknown]

NARRATIVE: CASE EVENT DATE: 2014
